FAERS Safety Report 5094840-6 (Version None)
Quarter: 2006Q3

REPORT INFORMATION
  Report Type: 
  Country: None (occurrence: None)
  Receive Date: 20060831
  Receipt Date: 20060831
  Transmission Date: 20061208
  Serious: Yes (Other)
  Sender: FDA-Public Use
  Company Number: None

PATIENT
  Age: 37 Year
  Sex: Male
  Weight: 113.8 kg

DRUGS (1)
  1. COMMIT LOZENGE 4 MG GLAXOSMITHKLINE [Suspect]
     Indication: SMOKING CESSATION THERAPY
     Dosage: 4MG 9/DAY PO
     Route: 048

REACTIONS (4)
  - HYPOAESTHESIA [None]
  - INTERVERTEBRAL DISC DISORDER [None]
  - MONARTHRITIS [None]
  - NERVE COMPRESSION [None]
